FAERS Safety Report 8854360 (Version 1)
Quarter: 2012Q4

REPORT INFORMATION
  Report Type: 
  Country: US (occurrence: US)
  Receive Date: 20121023
  Receipt Date: 20121023
  Transmission Date: 20130627
  Serious: No
  Sender: FDA-Public Use
  Company Number: US-ASTRAZENECA-2012SE80590

PATIENT
  Age: 48 Year
  Sex: Female

DRUGS (10)
  1. SYMBICORT PMDI [Suspect]
     Indication: CHRONIC OBSTRUCTIVE PULMONARY DISEASE
     Dosage: 160 MCG, DAILY
     Route: 055
     Dates: start: 20120620
  2. LIPOSEN [Concomitant]
     Indication: BLOOD CHOLESTEROL ABNORMAL
  3. SPIRIVA [Concomitant]
     Indication: CHRONIC OBSTRUCTIVE PULMONARY DISEASE
  4. PAXIL [Concomitant]
     Indication: DEPRESSION
  5. DIRTOPAN [Concomitant]
     Indication: BLADDER DISORDER
  6. VICODIN [Concomitant]
     Indication: PAIN IN EXTREMITY
  7. VICODIN [Concomitant]
     Indication: BACK PAIN
  8. ATIVAN [Concomitant]
     Indication: ANXIETY
  9. REBIF [Concomitant]
     Indication: MULTIPLE SCLEROSIS
  10. ELAVIL [Concomitant]

REACTIONS (9)
  - Confusional state [Unknown]
  - Psychotic disorder [Unknown]
  - Amnesia [Unknown]
  - Memory impairment [Unknown]
  - Feeling abnormal [Unknown]
  - Adverse event [Unknown]
  - Dysgraphia [Unknown]
  - Hallucination, visual [Unknown]
  - Anxiety [Unknown]
